FAERS Safety Report 5269182-6 (Version None)
Quarter: 2007Q1

REPORT INFORMATION
  Report Type: 
  Country: None (occurrence: None)
  Receive Date: 20070319
  Receipt Date: 20070307
  Transmission Date: 20070707
  Serious: Yes (Disabling)
  Sender: FDA-Public Use
  Company Number: BG-SHR-BG-2007-008387

PATIENT
  Sex: Female

DRUGS (1)
  1. BETASERON [Suspect]
     Dosage: 250 A?G, EVERY 2D
     Route: 058
     Dates: start: 20060101

REACTIONS (3)
  - ALOPECIA [None]
  - PANNICULITIS [None]
  - VASCULITIS [None]
